FAERS Safety Report 19931423 (Version 1)
Quarter: 2021Q4

REPORT INFORMATION
  Report Type: Spontaneous
  Country: GB (occurrence: GB)
  Receive Date: 20211007
  Receipt Date: 20211007
  Transmission Date: 20220303
  Serious: Yes (Hospitalization, Other)
  Sender: FDA-Public Use
  Company Number: None

PATIENT
  Sex: Female
  Weight: 84.45 kg

DRUGS (64)
  1. DEXAMETHASONE [Suspect]
     Active Substance: DEXAMETHASONE
     Indication: Product used for unknown indication
     Dosage: 8 MG
     Route: 065
     Dates: start: 20210310, end: 20210310
  2. DEXAMETHASONE [Suspect]
     Active Substance: DEXAMETHASONE
     Dosage: UNK
     Route: 065
     Dates: start: 20210119, end: 20210120
  3. DEXAMETHASONE [Suspect]
     Active Substance: DEXAMETHASONE
     Dosage: UNK
     Route: 065
     Dates: start: 20201216, end: 20201218
  4. DEXAMETHASONE [Suspect]
     Active Substance: DEXAMETHASONE
     Dosage: UNK
     Route: 065
     Dates: start: 20201215, end: 20201215
  5. DEXAMETHASONE [Suspect]
     Active Substance: DEXAMETHASONE
     Dosage: UNK
     Route: 065
     Dates: start: 20201125, end: 20201127
  6. DEXAMETHASONE [Suspect]
     Active Substance: DEXAMETHASONE
     Dosage: 8 MG
     Route: 065
     Dates: start: 20201124, end: 20201124
  7. DEXAMETHASONE [Suspect]
     Active Substance: DEXAMETHASONE
     Dosage: 8 MG
     Route: 065
     Dates: start: 20201103, end: 20201103
  8. ACYCLOVIR [Suspect]
     Active Substance: ACYCLOVIR
     Indication: Product used for unknown indication
     Dosage: UNK
     Route: 065
     Dates: start: 20210105, end: 20210126
  9. ATEZOLIZUMAB [Suspect]
     Active Substance: ATEZOLIZUMAB
     Indication: Small cell lung cancer extensive stage
     Dosage: 1200 MG, ONCE IN THREE WEEKS
     Route: 041
     Dates: start: 20201103, end: 20201215
  10. CARBOPLATIN [Suspect]
     Active Substance: CARBOPLATIN
     Indication: Product used for unknown indication
     Dosage: 450 MG
     Route: 065
     Dates: start: 20201124
  11. CLOBETASOL PROPIONATE [Suspect]
     Active Substance: CLOBETASOL PROPIONATE
     Indication: Product used for unknown indication
     Dosage: UNK
     Route: 065
     Dates: start: 20210104, end: 20210108
  12. ETOPOSIDE [Suspect]
     Active Substance: ETOPOSIDE
     Indication: Product used for unknown indication
     Dosage: UNK
     Route: 048
     Dates: start: 20210210, end: 20210210
  13. ETOPOSIDE [Suspect]
     Active Substance: ETOPOSIDE
     Dosage: UNK, BID
     Route: 065
     Dates: start: 20201216, end: 20201217
  14. ETOPOSIDE [Suspect]
     Active Substance: ETOPOSIDE
     Dosage: UNK, BID
     Route: 065
     Dates: start: 20201125, end: 20201126
  15. ETOPOSIDE [Suspect]
     Active Substance: ETOPOSIDE
     Dosage: 800 MG
     Route: 048
     Dates: start: 20201125
  16. ETOPOSIDE [Suspect]
     Active Substance: ETOPOSIDE
     Dosage: 200 MG
     Route: 065
     Dates: start: 20201124
  17. PREDNISOLONE [Suspect]
     Active Substance: PREDNISOLONE
     Indication: Product used for unknown indication
     Dosage: UNK
     Route: 065
     Dates: start: 20210121, end: 20210125
  18. PREDNISOLONE [Suspect]
     Active Substance: PREDNISOLONE
     Dosage: UNK
     Route: 065
     Dates: start: 20210108, end: 20210125
  19. ADCAL [Concomitant]
     Dosage: UNK, BID
     Route: 065
     Dates: start: 20201124
  20. ADCAL [Concomitant]
     Dosage: UNK
     Route: 065
     Dates: start: 20210104, end: 20210108
  21. ADCAL [Concomitant]
     Dosage: UNK, BID
     Route: 065
     Dates: start: 20210103, end: 20210124
  22. AMITRIPTYLINE [Concomitant]
     Active Substance: AMITRIPTYLINE
     Route: 065
     Dates: start: 20210108, end: 20210121
  23. CHLORPHENIRAMINE MALEATE [Concomitant]
     Active Substance: CHLORPHENIRAMINE MALEATE
     Indication: Flushing
     Dosage: UNK
     Route: 065
     Dates: start: 20201215, end: 20201215
  24. CHLORPHENIRAMINE MALEATE [Concomitant]
     Active Substance: CHLORPHENIRAMINE MALEATE
     Dosage: 10 MG
     Route: 065
     Dates: start: 20201124, end: 20201124
  25. AMOXICILLIN\CLAVULANATE POTASSIUM [Concomitant]
     Active Substance: AMOXICILLIN\CLAVULANATE POTASSIUM
     Route: 065
     Dates: end: 20210107
  26. COTRIMOXAZOLE [Concomitant]
     Active Substance: SULFAMETHOXAZOLE\TRIMETHOPRIM
     Route: 065
     Dates: start: 20210125
  27. CREON [Concomitant]
     Active Substance: PANCRELIPASE AMYLASE\PANCRELIPASE LIPASE\PANCRELIPASE PROTEASE
     Route: 065
     Dates: start: 20210120
  28. CYCLIZINE [Concomitant]
     Active Substance: CYCLIZINE
     Route: 065
  29. DALTEPARIN [Concomitant]
     Active Substance: DALTEPARIN
     Route: 065
     Dates: start: 20210119, end: 20210125
  30. DENOSUMAB [Concomitant]
     Active Substance: DENOSUMAB
     Indication: Metastases to bone
     Dosage: UNK, QMO
     Route: 065
     Dates: start: 20201124, end: 20201124
  31. DIHYDROCODEINE [Concomitant]
     Active Substance: DIHYDROCODEINE
     Indication: Pain
     Route: 065
  32. DOMPERIDONE [Concomitant]
     Active Substance: DOMPERIDONE
     Indication: Prophylaxis
     Dosage: UNK, PRN
     Route: 065
     Dates: start: 20201103
  33. FILGRASTIM [Concomitant]
     Active Substance: FILGRASTIM
     Indication: Prophylaxis
     Dosage: UNK, QD
     Route: 065
     Dates: start: 20201218, end: 20201226
  34. FILGRASTIM [Concomitant]
     Active Substance: FILGRASTIM
     Dosage: UNK, BID
     Route: 065
     Dates: start: 20201128, end: 20201205
  35. FILGRASTIM [Concomitant]
     Active Substance: FILGRASTIM
     Dosage: UNK
     Route: 065
     Dates: start: 20201226, end: 20201229
  36. FOLIC ACID [Concomitant]
     Active Substance: FOLIC ACID
     Route: 065
     Dates: start: 20210123
  37. HYDROCORTISONE [Concomitant]
     Active Substance: HYDROCORTISONE
     Indication: Flushing
     Dosage: 100 MG
     Route: 065
     Dates: start: 20201124, end: 20201124
  38. LOPERAMIDE [Concomitant]
     Active Substance: LOPERAMIDE
     Indication: Diarrhoea
     Dosage: UNK, PRN
     Route: 065
     Dates: start: 20201103
  39. MAGNESIUM SULFATE [Concomitant]
     Active Substance: MAGNESIUM SULFATE
     Route: 065
     Dates: start: 20210118, end: 20210118
  40. MEROPENEM [Concomitant]
     Active Substance: MEROPENEM
     Route: 065
     Dates: start: 20210103, end: 20210104
  41. MEROPENEM [Concomitant]
     Active Substance: MEROPENEM
     Dosage: EVERY 0.33 DAY;
     Route: 065
     Dates: start: 20201226, end: 20210103
  42. METHYLPREDNISOLONE [Concomitant]
     Active Substance: METHYLPREDNISOLONE
     Dosage: UNK
     Route: 065
     Dates: start: 20210122, end: 20210125
  43. METHYLPREDNISOLONE [Concomitant]
     Active Substance: METHYLPREDNISOLONE
     Dosage: UNK
     Route: 065
     Dates: start: 20210120, end: 20210120
  44. METHYLPREDNISOLONE [Concomitant]
     Active Substance: METHYLPREDNISOLONE
     Dosage: UNK
     Route: 065
     Dates: start: 20210118, end: 20210118
  45. NYSTATIN [Concomitant]
     Active Substance: NYSTATIN
     Route: 065
     Dates: start: 20210103, end: 20210107
  46. OMEPRAZOLE [Concomitant]
     Active Substance: OMEPRAZOLE
     Route: 065
     Dates: start: 20210103
  47. ONDANSETRON [Concomitant]
     Active Substance: ONDANSETRON
     Indication: Prophylaxis
     Dosage: UNK
     Route: 065
     Dates: start: 20210118, end: 20210122
  48. ONDANSETRON [Concomitant]
     Active Substance: ONDANSETRON
     Dosage: UNK UNK, TID
     Route: 065
     Dates: start: 20201222
  49. ONDANSETRON [Concomitant]
     Active Substance: ONDANSETRON
     Dosage: 8 MG, QD
     Route: 065
     Dates: start: 20201124, end: 20201124
  50. ONDANSETRON [Concomitant]
     Active Substance: ONDANSETRON
     Dosage: UNK, PRN
     Route: 065
     Dates: start: 20201227, end: 20210108
  51. ONDANSETRON [Concomitant]
     Active Substance: ONDANSETRON
     Dosage: UNK, QD
     Route: 065
     Dates: start: 20201215, end: 20201215
  52. OXYGEN [Concomitant]
     Active Substance: OXYGEN
     Indication: Flushing
     Dosage: UNK, QD
     Route: 065
     Dates: start: 20201124, end: 20201124
  53. ACETAMINOPHEN [Concomitant]
     Active Substance: ACETAMINOPHEN
     Indication: Pain
     Dosage: UNK, PRN
     Route: 065
  54. PHOSPHATE SANDOZ EFFERVESCENT [Concomitant]
     Dosage: UNK
     Route: 065
     Dates: start: 20210125
  55. PHOSPHATE SANDOZ EFFERVESCENT [Concomitant]
     Dosage: UNK, EVERY 0.33 DAYS
     Route: 065
     Dates: start: 20210108
  56. PHOSPHATE SANDOZ EFFERVESCENT [Concomitant]
     Route: 065
     Dates: start: 20210103, end: 20210108
  57. PHYTONADIONE [Concomitant]
     Active Substance: PHYTONADIONE
     Dosage: UNK, BID
     Route: 065
     Dates: start: 20201226
  58. SIMVASTATIN [Concomitant]
     Active Substance: SIMVASTATIN
     Indication: Hypercholesterolaemia
     Dosage: UNK, QD
     Route: 065
  59. SODIUM CHLORIDE [Concomitant]
     Active Substance: SODIUM CHLORIDE
     Indication: Flushing
     Route: 065
     Dates: start: 20201124, end: 20201124
  60. TRIMOVATE [Concomitant]
     Active Substance: CLOBETASONE BUTYRATE\NYSTATIN\OXYTETRACYCLINE CALCIUM
     Route: 065
     Dates: start: 20210104, end: 20210109
  61. VANCOMYCIN [Concomitant]
     Active Substance: VANCOMYCIN
     Route: 065
     Dates: start: 20210118, end: 20210120
  62. CALCIUM GLUCONATE [Concomitant]
     Active Substance: CALCIUM GLUCONATE
     Route: 065
     Dates: start: 20201226, end: 20201226
  63. CHOLECALCIFEROL [Concomitant]
     Active Substance: CHOLECALCIFEROL
     Route: 065
     Dates: start: 20210122, end: 20210125
  64. POTASSIUM CHLORIDE [Concomitant]
     Active Substance: POTASSIUM CHLORIDE
     Dosage: UNK, EVERY 0,33 DAY
     Route: 065
     Dates: start: 20210104

REACTIONS (20)
  - Terminal ileitis [Not Recovered/Not Resolved]
  - Vomiting [Recovered/Resolved]
  - Anaemia [Recovered/Resolved]
  - Thrombocytopenia [Recovered/Resolved]
  - Neutropenic sepsis [Recovered/Resolved]
  - Enterocolitis [Recovered/Resolved]
  - COVID-19 pneumonia [Not Recovered/Not Resolved]
  - Acute kidney injury [Not Recovered/Not Resolved]
  - Alopecia [Not Recovered/Not Resolved]
  - Pancreatitis chronic [Not Recovered/Not Resolved]
  - Clostridium difficile infection [Recovered/Resolved]
  - Diarrhoea [Recovered/Resolved]
  - Dizziness [Not Recovered/Not Resolved]
  - Flushing [Recovered/Resolved]
  - Hypokalaemia [Recovered/Resolved]
  - Nausea [Recovered/Resolved]
  - Hypoaesthesia [Not Recovered/Not Resolved]
  - Pancytopenia [Not Recovered/Not Resolved]
  - Dyspnoea [Recovered/Resolved]
  - Fatigue [Not Recovered/Not Resolved]

NARRATIVE: CASE EVENT DATE: 20201120
